FAERS Safety Report 8815803 (Version 1)
Quarter: 2012Q4

REPORT INFORMATION
  Report Type: 
  Country: PT (occurrence: PT)
  Receive Date: 20120928
  Receipt Date: 20120928
  Transmission Date: 20130627
  Serious: Yes (Other)
  Sender: FDA-Public Use
  Company Number: PT-VERTEX PHARMACEUTICAL INC.-2012-021775

PATIENT
  Sex: Female

DRUGS (3)
  1. INCIVO [Suspect]
     Indication: HEPATITIS C
     Dosage: UNK
     Dates: end: 20120919
  2. RIBAVIRIN [Concomitant]
     Indication: HEPATITIS C
     Route: 065
  3. PEG INTERFERON [Concomitant]
     Indication: HEPATITIS C
     Route: 065

REACTIONS (1)
  - Rash [Not Recovered/Not Resolved]
